FAERS Safety Report 20305496 (Version 2)
Quarter: 2025Q1

REPORT INFORMATION
  Report Type: Spontaneous
  Country: US (occurrence: US)
  Receive Date: 20220106
  Receipt Date: 20250103
  Transmission Date: 20250409
  Serious: Yes (Other)
  Sender: AMNEAL
  Company Number: US-AMNEAL PHARMACEUTICALS-2021-AMRX-00286

PATIENT
  Age: 27 Year
  Sex: Female

DRUGS (7)
  1. ACTIVELLA [Suspect]
     Active Substance: ESTRADIOL\NORETHINDRONE ACETATE
     Indication: Endometriosis
     Dosage: 1MG/0.5MG, QD
     Route: 048
     Dates: start: 20200303, end: 20210120
  2. ELAGOLIX [Suspect]
     Active Substance: ELAGOLIX
     Indication: Endometriosis
     Dosage: 400 MILLIGRAM, QD
     Route: 048
     Dates: start: 20200303, end: 20210120
  3. PLACEBO [Suspect]
     Active Substance: PLACEBO
     Indication: Endometriosis
     Dosage: UNK, QD
     Route: 048
     Dates: start: 20190402, end: 20200303
  4. IBUPROFEN [Concomitant]
     Active Substance: IBUPROFEN
     Indication: Pelvic pain
     Route: 048
     Dates: start: 201802
  5. ERGOCALCIFEROL [Concomitant]
     Active Substance: ERGOCALCIFEROL
     Indication: Vitamin D deficiency
     Dosage: 50000 INTERNATIONAL UNIT, 1 /WEEK
     Route: 048
     Dates: start: 20190410
  6. AMITRIPTYLINE [Concomitant]
     Active Substance: AMITRIPTYLINE
     Indication: Migraine
     Dosage: 10 MILLIGRAM, QD
     Route: 048
     Dates: start: 20190926, end: 20191022
  7. AMITRIPTYLINE [Concomitant]
     Active Substance: AMITRIPTYLINE
     Dosage: 20 MILLIGRAM, QD
     Route: 048
     Dates: start: 20191023

REACTIONS (2)
  - Maternal exposure during pregnancy [Unknown]
  - Live birth [Unknown]

NARRATIVE: CASE EVENT DATE: 20210916
